FAERS Safety Report 5592287-7 (Version None)
Quarter: 2007Q4

REPORT INFORMATION
  Report Type: 
  Country: None (occurrence: None)
  Receive Date: 20071217
  Receipt Date: 20071031
  Transmission Date: 20080405
  Serious: Yes (Hospitalization)
  Sender: FDA-Public Use
  Company Number: BDI-010484

PATIENT
  Age: 74 Year
  Sex: Male

DRUGS (3)
  1. MULTIHANCE [Suspect]
     Indication: ANEURYSM
     Dosage: 10 ML ONCE IV
     Route: 042
     Dates: start: 20071031, end: 20071031
  2. MULTIHANCE [Suspect]
     Indication: HEADACHE
     Dosage: 10 ML ONCE IV
     Route: 042
     Dates: start: 20071031, end: 20071031
  3. MULTIHANCE [Suspect]
     Indication: NUCLEAR MAGNETIC RESONANCE IMAGING BRAIN
     Dosage: 10 ML ONCE IV
     Route: 042
     Dates: start: 20071031, end: 20071031

REACTIONS (1)
  - HYPERSENSITIVITY [None]
